FAERS Safety Report 6463386-2 (Version None)
Quarter: 2009Q4

REPORT INFORMATION
  Report Type: 
  Country: None (occurrence: None)
  Receive Date: 20091201
  Receipt Date: 20090901
  Transmission Date: 20100525
  Serious: Yes (Other)
  Sender: FDA-Public Use
  Company Number: US-AMGEN-QUU359204

PATIENT
  Age: 52 Year
  Sex: Male
  Weight: 86.3 kg

DRUGS (7)
  1. ENBREL [Suspect]
     Indication: RHEUMATOID ARTHRITIS
     Route: 058
     Dates: start: 20060101, end: 20090701
  2. METHOTREXATE [Concomitant]
     Dates: start: 20050101, end: 20090101
  3. LEXAPRO [Concomitant]
  4. ALGELDRATE [Concomitant]
  5. LISINOPRIL [Concomitant]
  6. PROTONIX [Concomitant]
  7. PROVENTIL GENTLEHALER [Concomitant]

REACTIONS (3)
  - ACTINIC KERATOSIS [None]
  - LUNG DISORDER [None]
  - SQUAMOUS CELL CARCINOMA OF SKIN [None]
